FAERS Safety Report 20350969 (Version 3)
Quarter: 2022Q4

REPORT INFORMATION
  Report Type: Report from Study
  Country: GB (occurrence: None)
  Receive Date: 20220119
  Receipt Date: 20221229
  Transmission Date: 20230113
  Serious: Yes (Hospitalization)
  Sender: FDA-Public Use
  Company Number: GB-Merck Healthcare KGaA-9293070

PATIENT
  Age: 48 Year
  Sex: Male

DRUGS (4)
  1. MAVENCLAD [Suspect]
     Active Substance: CLADRIBINE
     Indication: Multiple sclerosis
     Dosage: YEAR ONE WEEK ONE THERAPY.
     Route: 048
     Dates: start: 20210802
  2. MAVENCLAD [Suspect]
     Active Substance: CLADRIBINE
     Dosage: YEAR ONE WEEK FIVE THERAPY. 2 TABLETS ON DAYS 1 AND 2 AND 1 TABLET ON DAYS 3 TO 5.
     Route: 048
     Dates: start: 20210830
  3. MAVENCLAD [Suspect]
     Active Substance: CLADRIBINE
     Dosage: YEAR TWO WEEK ONE THERAPY
     Route: 048
     Dates: start: 20220718
  4. MAVENCLAD [Suspect]
     Active Substance: CLADRIBINE
     Dosage: YEAR TWO WEEK FIVE THERAPY
     Route: 048
     Dates: start: 20220815

REACTIONS (2)
  - Urinary retention [Unknown]
  - Cystitis [Unknown]
